FAERS Safety Report 7380774-0 (Version None)
Quarter: 2011Q1

REPORT INFORMATION
  Report Type: 
  Country: None (occurrence: None)
  Receive Date: 20110329
  Receipt Date: 20101124
  Transmission Date: 20110831
  Serious: Yes (Other)
  Sender: FDA-Public Use
  Company Number: A0897705A

PATIENT
  Age: 73 Year
  Sex: Male

DRUGS (1)
  1. AVANDAMET [Suspect]
     Dosage: 2MG TWICE PER DAY
     Route: 048
     Dates: start: 20051219, end: 20080627

REACTIONS (4)
  - CHEST PAIN [None]
  - ISCHAEMIC CARDIOMYOPATHY [None]
  - IMPLANTABLE DEFIBRILLATOR INSERTION [None]
  - CORONARY ARTERY DISEASE [None]
